FAERS Safety Report 7094404-9 (Version None)
Quarter: 2010Q4

REPORT INFORMATION
  Report Type: 
  Country: None (occurrence: None)
  Receive Date: 20101110
  Receipt Date: 20101027
  Transmission Date: 20110411
  Serious: Yes (Other)
  Sender: FDA-Public Use
  Company Number: PHHY2010US72864

PATIENT

DRUGS (1)
  1. GLEEVEC [Suspect]

REACTIONS (2)
  - ELECTROCARDIOGRAM ABNORMAL [None]
  - NAUSEA [None]
